FAERS Safety Report 23640607 (Version 1)
Quarter: 2024Q1

REPORT INFORMATION
  Report Type: Spontaneous
  Country: GB (occurrence: GB)
  Receive Date: 20240318
  Receipt Date: 20240318
  Transmission Date: 20240410
  Serious: Yes (Other)
  Sender: FDA-Public Use
  Company Number: GB-MHRA-EMIS-1694-5651ea4c-ad83-4a1a-b3fe-8a2a93c0f33a

PATIENT
  Age: 74 Year
  Sex: Female
  Weight: 65.7 kg

DRUGS (3)
  1. ATORVASTATIN [Suspect]
     Active Substance: ATORVASTATIN
     Indication: Product used for unknown indication
     Dosage: 1 DOSAGE FORM, ONCE A DAY
     Route: 065
     Dates: start: 20231204, end: 20240301
  2. Biotene Dry Mouth [Concomitant]
     Indication: Product used for unknown indication
     Dosage: 1000 MILLILITER, AS DIRECTED,(HALEON UK LTD)
     Route: 065
     Dates: start: 20240301
  3. Biotene Dry Mouth [Concomitant]
     Indication: Product used for unknown indication
     Dosage: 100 GRAM,ASD. (HALEON UK LTD),SALIVA REPLACEMENT GEL
     Route: 065
     Dates: start: 20240301

REACTIONS (2)
  - Abdominal pain [Unknown]
  - Myalgia [Unknown]
